FAERS Safety Report 17717593 (Version 5)
Quarter: 2020Q2

REPORT INFORMATION
  Report Type: Spontaneous
  Country: ID (occurrence: ID)
  Receive Date: 20200428
  Receipt Date: 20200616
  Transmission Date: 20200714
  Serious: Yes (Other)
  Sender: FDA-Public Use
  Company Number: ID-PFIZER INC-2020168234

PATIENT
  Age: 48 Year
  Sex: Female

DRUGS (2)
  1. BRENTUXIMAB VEDOTIN [Concomitant]
     Active Substance: BRENTUXIMAB VEDOTIN
     Indication: HODGKIN^S DISEASE
     Dosage: 1.2 MG/KG, CYCLIC (FOR 6 CYCLES AND 2 MORE CYCLES)
     Dates: start: 201802
  2. GEMCITABINE HYDROCHLORIDE. [Suspect]
     Active Substance: GEMCITABINE HYDROCHLORIDE
     Indication: HODGKIN^S DISEASE
     Dosage: 600 MG/M2, CYCLIC (ON DAYS 1 AND 8)
     Dates: start: 2018

REACTIONS (3)
  - Oedema [Recovered/Resolved]
  - Hypotension [Recovered/Resolved]
  - Petechiae [Recovered/Resolved]
